FAERS Safety Report 11880883 (Version 2)
Quarter: 2016Q1

REPORT INFORMATION
  Report Type: Report from Study
  Country: US (occurrence: US)
  Receive Date: 20151230
  Receipt Date: 20160113
  Transmission Date: 20160526
  Serious: Yes (Hospitalization, Other)
  Sender: FDA-Public Use
  Company Number: US-GILEAD-2015-0190324

PATIENT
  Age: 72 Year
  Sex: Female

DRUGS (5)
  1. WARFARIN [Suspect]
     Active Substance: WARFARIN
     Indication: PRODUCT USED FOR UNKNOWN INDICATION
     Route: 065
  2. CARVEDILOL. [Concomitant]
     Active Substance: CARVEDILOL
  3. AMBRISENTAN [Suspect]
     Active Substance: AMBRISENTAN
     Indication: PRODUCT USED FOR UNKNOWN INDICATION
     Dosage: 10 MG, QD
     Route: 065
     Dates: start: 20140702
  4. OXYGEN. [Concomitant]
     Active Substance: OXYGEN
     Indication: PRODUCT USED FOR UNKNOWN INDICATION
     Route: 065
  5. DIGOXIN. [Concomitant]
     Active Substance: DIGOXIN

REACTIONS (11)
  - Vaginal haemorrhage [Unknown]
  - Dialysis [Unknown]
  - Haemoglobin decreased [Unknown]
  - Anaesthetic complication [Not Recovered/Not Resolved]
  - Cerebrovascular accident [Unknown]
  - Bowel movement irregularity [Not Recovered/Not Resolved]
  - Dyspnoea [Not Recovered/Not Resolved]
  - Atrial fibrillation [Unknown]
  - Psychotic disorder [Not Recovered/Not Resolved]
  - Hysterectomy [Unknown]
  - Precancerous cells present [Unknown]

NARRATIVE: CASE EVENT DATE: 2014
